FAERS Safety Report 8784308 (Version 1)
Quarter: 2012Q4

REPORT INFORMATION
  Report Type: 
  Country: US (occurrence: US)
  Receive Date: 20120913
  Receipt Date: 20120913
  Transmission Date: 20130627
  Serious: Yes (Other)
  Sender: FDA-Public Use
  Company Number: US-PFIZER INC-2012226669

PATIENT
  Age: 52 Year
  Sex: Male
  Weight: 81.63 kg

DRUGS (10)
  1. CHANTIX [Suspect]
     Indication: SMOKING CESSATION THERAPY
     Dosage: 0.5 mg, daily
     Route: 048
     Dates: start: 20120910
  2. CLONAZEPAM [Suspect]
     Indication: SLEEP DISORDER
     Dosage: 30 mg, as needed
  3. CLARITIN-D [Concomitant]
     Indication: HYPERSENSITIVITY
     Dosage: 120/5 mg, daily
  4. FENTANYL [Concomitant]
     Indication: PAIN
     Dosage: 100mcg per hour every 48 hours
  5. OXYCONTIN [Concomitant]
     Indication: PAIN
     Dosage: 60 mg, 3x/day
  6. OXYCODONE [Concomitant]
     Indication: PAIN
     Dosage: 10 tablets of 10mg in a month at an unknown frequency, as needed
  7. GABAPENTIN [Concomitant]
     Indication: NEURALGIA
     Dosage: 800 mg, 4x/day
  8. MOBIC [Concomitant]
     Indication: INFLAMMATION
     Dosage: 7.5 mg, 2x/day
  9. ZANTAC [Concomitant]
     Indication: ABDOMINAL DISCOMFORT
     Dosage: 300 mg, as needed
  10. SOMA [Concomitant]
     Indication: MUSCLE SPASMS
     Dosage: 350 mg, 3x/day

REACTIONS (3)
  - Dyspnoea [Not Recovered/Not Resolved]
  - Asthma [Unknown]
  - Abnormal dreams [Unknown]
